FAERS Safety Report 16920434 (Version 1)
Quarter: 2019Q4

REPORT INFORMATION
  Report Type: Spontaneous
  Country: GB (occurrence: GB)
  Receive Date: 20191015
  Receipt Date: 20191015
  Transmission Date: 20200122
  Serious: Yes (Hospitalization, Other)
  Sender: FDA-Public Use
  Company Number: GB-VISTAPHARM, INC.-VER201910-001107

PATIENT
  Age: 48 Year
  Sex: Female

DRUGS (6)
  1. ALBUTEROL. [Suspect]
     Active Substance: ALBUTEROL
     Indication: ASTHMA
     Dosage: 5MG
  2. ALBUTEROL. [Suspect]
     Active Substance: ALBUTEROL
     Dosage: 25 MG
  3. TERBUTALINE [Concomitant]
     Active Substance: TERBUTALINE
     Indication: ASTHMA
     Dosage: UNKNOWN
  4. PREDNISOLONE. [Concomitant]
     Active Substance: PREDNISOLONE
     Indication: ASTHMA
     Dosage: 40 MG
     Route: 048
  5. ALBUTEROL. [Suspect]
     Active Substance: ALBUTEROL
     Dosage: SIX TIMES PER DAY (INHALER)
  6. IPRATROPIUM BROMIDE. [Concomitant]
     Active Substance: IPRATROPIUM BROMIDE
     Indication: ASTHMA
     Dosage: 500 MICROG

REACTIONS (2)
  - Lactic acidosis [Recovered/Resolved]
  - Tachypnoea [Unknown]
